FAERS Safety Report 5894972-6 (Version None)
Quarter: 2008Q3

REPORT INFORMATION
  Report Type: 
  Country: None (occurrence: None)
  Receive Date: 20080922
  Receipt Date: 20080905
  Transmission Date: 20090109
  Serious: Yes (Hospitalization)
  Sender: FDA-Public Use
  Company Number: 2008BI023313

PATIENT
  Age: 23 Year
  Sex: Female

DRUGS (3)
  1. AVONEX [Suspect]
     Indication: MULTIPLE SCLEROSIS
     Dosage: 30 UG; QW; IM, 30 UG; QW; IM
     Route: 030
     Dates: start: 20020901, end: 20070701
  2. AVONEX [Suspect]
     Indication: MULTIPLE SCLEROSIS
     Dosage: 30 UG; QW; IM, 30 UG; QW; IM
     Route: 030
     Dates: start: 20070901, end: 20080701
  3. AMYTRIL (CON.) [Concomitant]

REACTIONS (11)
  - APPLICATION SITE PAIN [None]
  - BACK PAIN [None]
  - CHILLS [None]
  - CONDITION AGGRAVATED [None]
  - DEPRESSION [None]
  - INJECTION SITE PAIN [None]
  - MULTIPLE SCLEROSIS [None]
  - NERVOUS SYSTEM DISORDER [None]
  - PNEUMONIA [None]
  - PYREXIA [None]
  - RETCHING [None]
